FAERS Safety Report 9797184 (Version 2)
Quarter: 2014Q1

REPORT INFORMATION
  Report Type: Spontaneous
  Country: FR (occurrence: None)
  Receive Date: 20131230
  Receipt Date: 20140115
  Transmission Date: 20141002
  Serious: Yes (Other)
  Sender: FDA-Public Use
  Company Number: HRA-MET20130201

PATIENT
  Age: 64 Year
  Sex: 0
  Weight: 92 kg

DRUGS (5)
  1. METOPIRONE [Suspect]
     Indication: ADRENOCORTICAL CARCINOMA
     Dosage: 3000 MG (250 MG, 12 CAPSULES), ORAL
     Route: 048
     Dates: start: 20131210, end: 20131210
  2. HYDROCORTISONE [Concomitant]
  3. VENLAFAXINE HYDROCHLORIDE [Concomitant]
  4. ESOMEPRAZOLE MAGNESIUM [Concomitant]
  5. LOPERAMIDE HYDROCHLORIDE [Concomitant]

REACTIONS (6)
  - Malaise [None]
  - Tremor [None]
  - Confusional state [None]
  - Vertigo [None]
  - Tension [None]
  - Adrenal insufficiency [None]
